FAERS Safety Report 7382709-3 (Version None)
Quarter: 2011Q1

REPORT INFORMATION
  Report Type: 
  Country: None (occurrence: None)
  Receive Date: 20110330
  Receipt Date: 20110321
  Transmission Date: 20110831
  Serious: Yes (Other)
  Sender: FDA-Public Use
  Company Number: US-BIOGENIDEC-2009BI035248

PATIENT
  Age: 48 Year
  Sex: Male

DRUGS (3)
  1. AVONEX [Suspect]
     Route: 030
     Dates: start: 19980501, end: 20110222
  2. AVONEX [Suspect]
     Route: 030
  3. AVONEX [Suspect]
     Indication: MULTIPLE SCLEROSIS
     Route: 030

REACTIONS (2)
  - MULTIPLE SCLEROSIS RELAPSE [None]
  - BASAL CELL CARCINOMA [None]
